FAERS Safety Report 20584058 (Version 1)
Quarter: 2022Q1

REPORT INFORMATION
  Report Type: Spontaneous
  Country: US (occurrence: US)
  Receive Date: 20220311
  Receipt Date: 20220311
  Transmission Date: 20220424
  Serious: No
  Sender: FDA-Public Use
  Company Number: US-BIOGEN-2022BI01104033

PATIENT
  Age: 55 Year
  Sex: Male
  Weight: 116.1 kg

DRUGS (1)
  1. VUMERITY [Suspect]
     Active Substance: DIROXIMEL FUMARATE
     Indication: Product used for unknown indication
     Route: 048
     Dates: start: 20211230, end: 202201

REACTIONS (4)
  - Intentional product misuse [Unknown]
  - Gastric disorder [Unknown]
  - Hangover [Unknown]
  - Pain [Unknown]
